FAERS Safety Report 15619234 (Version 1)
Quarter: 2018Q4

REPORT INFORMATION
  Report Type: Spontaneous
  Country: US (occurrence: US)
  Receive Date: 20181114
  Receipt Date: 20181114
  Transmission Date: 20190205
  Serious: No
  Sender: FDA-Public Use
  Company Number: US-SA-2018SA313025

PATIENT
  Sex: Female

DRUGS (1)
  1. LEMTRADA [Suspect]
     Active Substance: ALEMTUZUMAB
     Indication: MULTIPLE SCLEROSIS
     Dosage: UNK UNK,  UNK
     Route: 041
     Dates: start: 201807, end: 201807

REACTIONS (6)
  - Blood creatinine decreased [Unknown]
  - Urinary casts [Unknown]
  - Condition aggravated [Unknown]
  - Hypoaesthesia [Unknown]
  - Contusion [Unknown]
  - Platelet count abnormal [Unknown]

NARRATIVE: CASE EVENT DATE: 2018
